FAERS Safety Report 7706444-4 (Version None)
Quarter: 2011Q3

REPORT INFORMATION
  Report Type: 
  Country: None (occurrence: None)
  Receive Date: 20110824
  Receipt Date: 20110816
  Transmission Date: 20111222
  Serious: Yes (Hospitalization)
  Sender: FDA-Public Use
  Company Number: DE-BRISTOL-MYERS SQUIBB COMPANY-15975220

PATIENT
  Age: 63 Year
  Sex: Male

DRUGS (2)
  1. ABATACEPT [Suspect]
     Indication: RHEUMATOID ARTHRITIS
     Dates: start: 20100101
  2. LEFLUNOMIDE [Suspect]
     Dates: start: 20090101

REACTIONS (3)
  - INTERVERTEBRAL DISCITIS [None]
  - KLEBSIELLA INFECTION [None]
  - URINARY TRACT INFECTION [None]
